FAERS Safety Report 21400497 (Version 1)
Quarter: 2022Q4

REPORT INFORMATION
  Report Type: Spontaneous
  Country: DE (occurrence: DE)
  Receive Date: 20221003
  Receipt Date: 20221003
  Transmission Date: 20230112
  Serious: Yes (Hospitalization, Other)
  Sender: FDA-Public Use
  Company Number: DE-ADRED-08377-02

PATIENT
  Age: 77 Year
  Sex: Female
  Weight: 74 kg

DRUGS (12)
  1. METFORMIN [Suspect]
     Active Substance: METFORMIN HYDROCHLORIDE
     Indication: Product used for unknown indication
     Dosage: 500 MG, 1-0-1-0
     Route: 065
  2. DULAGLUTIDE [Suspect]
     Active Substance: DULAGLUTIDE
     Indication: Product used for unknown indication
     Dosage: 15 MG / WOCHE, SCHEMA
     Route: 065
  3. INSULIN GLARGINE [Suspect]
     Active Substance: INSULIN GLARGINE
     Indication: Product used for unknown indication
     Dosage: 50 IE, 0-0-1-0
     Route: 058
  4. ACETYLSALICYLATE ARGININE [Concomitant]
     Indication: Product used for unknown indication
     Dosage: 100 MG, 1-0-0-0
     Route: 065
  5. CANDESARTAN [Concomitant]
     Active Substance: CANDESARTAN
     Indication: Product used for unknown indication
     Dosage: 16 MG, 1-0-0.5-0
     Route: 065
  6. LEVOTHYROXINE [Concomitant]
     Active Substance: LEVOTHYROXINE
     Indication: Product used for unknown indication
     Dosage: 100 ?G, 1-0-0-0
     Route: 065
  7. MAGNESIUM [Concomitant]
     Active Substance: MAGNESIUM
     Indication: Product used for unknown indication
     Dosage: 240 MG, 1-0-0-0
     Route: 065
  8. HYDROCHLOROTHIAZIDE [Concomitant]
     Active Substance: HYDROCHLOROTHIAZIDE
     Indication: Product used for unknown indication
     Dosage: 12.5 MG, 1-0-0-0
     Route: 065
  9. SIMVASTATIN [Concomitant]
     Active Substance: SIMVASTATIN
     Indication: Product used for unknown indication
     Dosage: 20 MG, 0-0-1-0
     Route: 065
  10. PANTOPRAZOLE SODIUM [Concomitant]
     Active Substance: PANTOPRAZOLE SODIUM
     Indication: Product used for unknown indication
     Dosage: 20 MG, 1-0-0-0
     Route: 065
  11. CARVEDILOL [Concomitant]
     Active Substance: CARVEDILOL
     Indication: Product used for unknown indication
     Dosage: 12.5 MG, 1-0-1-0
     Route: 065
  12. COLECALCIFEROCAPS [Concomitant]
     Indication: Product used for unknown indication
     Dosage: 20000 IE / WOCHE, SCHEMA
     Route: 058

REACTIONS (8)
  - Systemic infection [Recovered/Resolved]
  - Loss of consciousness [Recovered/Resolved]
  - Headache [Recovered/Resolved]
  - Hypoglycaemia [Recovered/Resolved]
  - General physical health deterioration [Recovered/Resolved]
  - Disturbance in attention [Recovered/Resolved]
  - Hypertension [Recovered/Resolved]
  - Paresis [Recovered/Resolved]
